FAERS Safety Report 7818067-7 (Version None)
Quarter: 2011Q4

REPORT INFORMATION
  Report Type: 
  Country: None (occurrence: None)
  Receive Date: 20111017
  Receipt Date: 20111013
  Transmission Date: 20120403
  Serious: Yes (Other)
  Sender: FDA-Public Use
  Company Number: US-PFIZER INC-2011245380

PATIENT
  Sex: Female
  Weight: 81.633 kg

DRUGS (10)
  1. PLAVIX [Concomitant]
     Indication: CARDIAC DISORDER
     Dosage: 75 MG, UNK
  2. BYSTOLIC [Concomitant]
     Indication: CARDIAC DISORDER
     Dosage: UNK
  3. METFORMIN [Concomitant]
     Indication: DIABETES MELLITUS
     Dosage: UNK
  4. LANTUS [Concomitant]
     Indication: DIABETES MELLITUS
     Dosage: UNK
  5. FUROSEMIDE [Concomitant]
     Dosage: UNK
  6. NOVOLOG [Concomitant]
     Indication: DIABETES MELLITUS
     Dosage: UNK
  7. LIPITOR [Suspect]
     Indication: BLOOD CHOLESTEROL INCREASED
     Dosage: 20 MG, 1X/DAY
     Route: 048
  8. DIOVAN HCT [Concomitant]
     Indication: CARDIAC DISORDER
     Dosage: UNK
  9. KLOR-CON [Concomitant]
     Dosage: M20, UNK
  10. PRANDIN [Concomitant]
     Indication: DIABETES MELLITUS
     Dosage: UNK

REACTIONS (2)
  - NEURALGIA [None]
  - MYALGIA [None]
